FAERS Safety Report 6634718-7 (Version None)
Quarter: 2010Q1

REPORT INFORMATION
  Report Type: 
  Country: None (occurrence: None)
  Receive Date: 20100225
  Receipt Date: 20090805
  Transmission Date: 20100710
  Serious: No
  Sender: FDA-Public Use
  Company Number: 2009-00560

PATIENT
  Age: 43 Year
  Sex: Female
  Weight: 88.4514 kg

DRUGS (8)
  1. ZICAM COLD REMEDY GEL SWABS [Suspect]
     Dosage: BID - 2 MONTHS
     Dates: start: 20090401
  2. ZICAM COLD REMEDY GEL SWABS [Suspect]
     Dosage: BID - 2 MONTHS
     Dates: start: 20090601
  3. ZICAM MULTISYMPTOM DAYTIME COLD + FLU [Suspect]
     Dosage: BID - 2 MONTHS
     Dates: start: 20090401
  4. ZICAM MULTISYMPTOM DAYTIME COLD + FLU [Suspect]
     Dosage: BID - 2 MONTHS
     Dates: start: 20090601
  5. ZICAM MULTISYMPTOM NIGHTTIME COLD + FLU [Suspect]
     Dosage: BID, 2 MONTHS
     Dates: start: 20090401
  6. ZICAM MULTISYMPTOM NIGHTTIME COLD + FLU [Suspect]
     Dosage: BID, 2 MONTHS
     Dates: start: 20090601
  7. ZICAM MULTISYMPTOM NIGHTTIME COLD + FLU [Suspect]
     Dosage: BID, 2 MONTHS
     Dates: start: 20090401
  8. ZICAM MULTISYMPTOM NIGHTTIME COLD + FLU [Suspect]
     Dosage: BID, 2 MONTHS
     Dates: start: 20090601

REACTIONS (2)
  - AGEUSIA [None]
  - ANOSMIA [None]
